FAERS Safety Report 7375521-2 (Version None)
Quarter: 2011Q1

REPORT INFORMATION
  Report Type: 
  Country: None (occurrence: None)
  Receive Date: 20110325
  Receipt Date: 20110311
  Transmission Date: 20110831
  Serious: Yes (Other)
  Sender: FDA-Public Use
  Company Number: CA-JNJFOC-20110306566

PATIENT
  Sex: Female
  Weight: 96 kg

DRUGS (8)
  1. LANTUS [Concomitant]
     Route: 058
  2. GABAPENTIN [Concomitant]
     Route: 065
  3. METHOTREXATE [Concomitant]
     Route: 048
  4. FOLIC ACID [Concomitant]
     Dosage: EXCEPT MONDAYS/METHOTREXATE DOSING DAYS
     Route: 048
  5. REMICADE [Suspect]
     Indication: RHEUMATOID ARTHRITIS
     Route: 042
  6. VITAMIN D [Concomitant]
     Indication: MEDICAL DIET
     Route: 065
  7. METFORMIN HCL [Concomitant]
     Route: 048
  8. CALCIUM [Concomitant]
     Indication: MEDICAL DIET
     Route: 065

REACTIONS (1)
  - SYNOVIAL CYST [None]
